FAERS Safety Report 5322443-4 (Version None)
Quarter: 2007Q2

REPORT INFORMATION
  Report Type: 
  Country: None (occurrence: None)
  Receive Date: 20070511
  Receipt Date: 20070504
  Transmission Date: 20071010
  Serious: Yes (Hospitalization, Other)
  Sender: FDA-Public Use
  Company Number: PHNU2007DE01719

PATIENT
  Sex: Male

DRUGS (7)
  1. CO-DIOVAN [Suspect]
     Indication: HYPERTENSION
     Dosage: 1 DF, QD
     Route: 048
     Dates: end: 20061201
  2. CO-DIOVAN [Suspect]
     Dosage: 5 DF, QD
     Route: 048
     Dates: start: 20061201
  3. DIOVAN [Suspect]
     Indication: HYPERTENSION
     Dosage: 0.5 DF, QD
     Route: 048
     Dates: start: 20070401
  4. CONCOR [Concomitant]
  5. ACETYLSALICYLIC ACID SRT [Concomitant]
     Indication: CORONARY ARTERY DISEASE
  6. LOCOL [Concomitant]
     Indication: HYPERLIPIDAEMIA
  7. INSULIN [Concomitant]
     Indication: DIABETES MELLITUS

REACTIONS (10)
  - BLINDNESS TRANSIENT [None]
  - BLOOD CREATINE PHOSPHOKINASE INCREASED [None]
  - BLOOD GLUCOSE INCREASED [None]
  - CATHETERISATION CARDIAC [None]
  - CHEST PAIN [None]
  - HYPOTENSION [None]
  - PAIN IN EXTREMITY [None]
  - PHARYNGOLARYNGEAL PAIN [None]
  - STENT PLACEMENT [None]
  - VEIN DISORDER [None]
